FAERS Safety Report 5983946-2 (Version None)
Quarter: 2008Q4

REPORT INFORMATION
  Report Type: 
  Country: None (occurrence: None)
  Receive Date: 20081208
  Receipt Date: 20081201
  Transmission Date: 20090506
  Serious: Yes (Other)
  Sender: FDA-Public Use
  Company Number: US-ASTRAZENECA-2008UW26738

PATIENT
  Age: 42 Year
  Sex: Male
  Weight: 95.3 kg

DRUGS (1)
  1. SEROQUEL [Suspect]
     Indication: BIPOLAR DISORDER
     Route: 048
     Dates: start: 20060101

REACTIONS (8)
  - DEPRESSION [None]
  - GASTRIC DISORDER [None]
  - HEADACHE [None]
  - HEART RATE IRREGULAR [None]
  - NASAL CONGESTION [None]
  - PANIC ATTACK [None]
  - SUICIDAL IDEATION [None]
  - TREMOR [None]
